FAERS Safety Report 4756169-2 (Version None)
Quarter: 2005Q3

REPORT INFORMATION
  Report Type: 
  Country: None (occurrence: None)
  Receive Date: 20050829
  Receipt Date: 20050829
  Transmission Date: 20060218
  Serious: Yes (Life-Threatening, Hospitalization)
  Sender: FDA-Public Use
  Company Number: None

PATIENT
  Age: 69 Year
  Sex: Female
  Weight: 94 kg

DRUGS (12)
  1. AMIODARONE    200MG [Suspect]
     Indication: ATRIAL FIBRILLATION
     Dosage: 200MG  DAILY  ORAL
     Route: 048
     Dates: start: 20050101, end: 20050415
  2. WARFARIN SODIUM [Suspect]
     Indication: ATRIAL FIBRILLATION
     Dosage: 1MG ALT   ALT   ORAL
     Route: 048
  3. LEVOTHYROXINE [Concomitant]
  4. OMEPRAZOLE [Concomitant]
  5. ALLOPURINOL [Concomitant]
  6. DILTIAZEM [Concomitant]
  7. FUROSEMIDE [Concomitant]
  8. AMITRIPTYLINE HCL [Concomitant]
  9. METOPROLOL [Concomitant]
  10. SIMVASTATIN [Concomitant]
  11. CLONIDINE [Concomitant]
  12. ALBUTEROL [Concomitant]

REACTIONS (3)
  - DRUG TOXICITY [None]
  - DYSPNOEA [None]
  - INTERNATIONAL NORMALISED RATIO INCREASED [None]
